FAERS Safety Report 7941010-7 (Version None)
Quarter: 2011Q4

REPORT INFORMATION
  Report Type: 
  Country: None (occurrence: None)
  Receive Date: 20111128
  Receipt Date: 20111117
  Transmission Date: 20120403
  Serious: Yes (Hospitalization, Other)
  Sender: FDA-Public Use
  Company Number: US-JNJFOC-20111108161

PATIENT
  Age: 50 Year
  Sex: Female
  Weight: 52.62 kg

DRUGS (4)
  1. CLONAZEPAM [Suspect]
     Indication: INSOMNIA
     Dosage: AT BEDTIME
     Route: 048
     Dates: start: 20111003, end: 20111005
  2. VITAMIN B-12 [Suspect]
     Indication: PRODUCT USED FOR UNKNOWN INDICATION
     Route: 065
     Dates: start: 20111012
  3. LEVAQUIN [Suspect]
     Indication: SINUSITIS
     Route: 048
     Dates: start: 20110902, end: 20110923
  4. TEMAZEPAM [Suspect]
     Indication: INSOMNIA
     Dosage: AT BEDTIME
     Route: 048
     Dates: start: 20111005, end: 20111012

REACTIONS (17)
  - FOREIGN BODY [None]
  - PRODUCT QUALITY ISSUE [None]
  - ASTHENIA [None]
  - DRUG PRESCRIBING ERROR [None]
  - DYSPHAGIA [None]
  - ANXIETY [None]
  - PHARYNGEAL OEDEMA [None]
  - PALPITATIONS [None]
  - IMPAIRED DRIVING ABILITY [None]
  - THERAPY CESSATION [None]
  - FEELING ABNORMAL [None]
  - THROAT LESION [None]
  - SKIN WARM [None]
  - INSOMNIA [None]
  - ABNORMAL LOSS OF WEIGHT [None]
  - TREMOR [None]
  - HEART RATE IRREGULAR [None]
